FAERS Safety Report 7371670-3 (Version None)
Quarter: 2011Q1

REPORT INFORMATION
  Report Type: 
  Country: None (occurrence: None)
  Receive Date: 20110324
  Receipt Date: 20110315
  Transmission Date: 20110831
  Serious: Yes (Hospitalization, Other)
  Sender: FDA-Public Use
  Company Number: US-SANOFI-AVENTIS-A03200607610

PATIENT
  Age: 69 Year
  Sex: Male
  Weight: 95 kg

DRUGS (30)
  1. VALSARTAN [Concomitant]
     Route: 048
  2. FUROSEMIDE [Concomitant]
  3. EYE DROPS [Concomitant]
  4. LOPRESSOR [Concomitant]
     Route: 048
  5. AGGRENOX [Concomitant]
  6. CLOPIDOGREL BISULFATE [Suspect]
     Route: 048
     Dates: start: 20061128, end: 20080416
  7. GLIPIZIDE [Concomitant]
     Route: 048
  8. AMLODIPINE [Concomitant]
     Route: 048
  9. ASPIRIN [Suspect]
     Route: 048
     Dates: start: 19980101
  10. AMLODIPINE [Concomitant]
  11. CLOPIDOGREL BISULFATE [Suspect]
     Dosage: UNIT DOSE: 75 MG
     Route: 048
     Dates: start: 20040803, end: 20060601
  12. CLOPIDOGREL BISULFATE [Suspect]
     Route: 048
     Dates: start: 20061127, end: 20061127
  13. ASPIRIN [Suspect]
     Route: 048
  14. FENOFIBRATE [Concomitant]
  15. ALPHAGAN [Concomitant]
  16. ASPIRIN [Suspect]
     Route: 048
     Dates: start: 20050701
  17. COREG [Concomitant]
     Route: 048
  18. GLIPIZIDE [Concomitant]
  19. FUROSEMIDE [Concomitant]
     Route: 048
  20. CLOPIDOGREL BISULFATE [Suspect]
     Route: 048
     Dates: start: 20061127, end: 20061127
  21. ASPIRIN [Suspect]
     Route: 048
  22. CRESTOR [Concomitant]
  23. CLOPIDOGREL BISULFATE [Suspect]
     Indication: STENT PLACEMENT
     Dosage: UNIT DOSE: 75 MG
     Route: 048
     Dates: start: 20040803, end: 20060601
  24. CLOPIDOGREL BISULFATE [Suspect]
     Route: 048
     Dates: start: 20061128, end: 20080416
  25. ASPIRIN [Suspect]
     Route: 048
     Dates: start: 19980101
  26. ASPIRIN [Suspect]
     Route: 048
     Dates: start: 20050701
  27. VALSARTAN [Concomitant]
     Route: 048
  28. LISINOPRIL [Concomitant]
     Route: 048
  29. LUMIGAN [Concomitant]
  30. GLUCOTROL [Concomitant]
     Route: 048

REACTIONS (28)
  - TRANSIENT ISCHAEMIC ATTACK [None]
  - DIZZINESS [None]
  - VISION BLURRED [None]
  - POST PROCEDURAL HAEMORRHAGE [None]
  - UNRESPONSIVE TO STIMULI [None]
  - CAROTID ARTERY STENOSIS [None]
  - APHASIA [None]
  - SYNCOPE [None]
  - SUBARACHNOID HAEMORRHAGE [None]
  - CEREBROVASCULAR ACCIDENT [None]
  - GAIT DISTURBANCE [None]
  - DISORIENTATION [None]
  - MENTAL DISORDER [None]
  - SINUS BRADYCARDIA [None]
  - VENTRICULAR TACHYCARDIA [None]
  - HEMIPARESIS [None]
  - HAEMORRHAGE [None]
  - FALL [None]
  - HYPHAEMA [None]
  - CATARACT [None]
  - CONFUSIONAL STATE [None]
  - HEMIPLEGIA [None]
  - TREMOR [None]
  - CEREBRAL HAEMORRHAGE [None]
  - EYE PAIN [None]
  - BLINDNESS [None]
  - SPEECH DISORDER [None]
  - HYPOTENSION [None]
